FAERS Safety Report 4732370-9 (Version None)
Quarter: 2005Q3

REPORT INFORMATION
  Report Type: 
  Country: None (occurrence: None)
  Receive Date: 20050721
  Receipt Date: 20050523
  Transmission Date: 20060218
  Serious: No
  Sender: FDA-Public Use
  Company Number: 2005SP000931

PATIENT
  Age: 44 Year
  Sex: Female
  Weight: 39.0093 kg

DRUGS (3)
  1. LUNESTA [Suspect]
     Dosage: SEE IMAGE
     Route: 048
     Dates: start: 20050401, end: 20050520
  2. LUNESTA [Suspect]
     Dosage: SEE IMAGE
     Route: 048
  3. LUNESTA [Suspect]
     Dosage: SEE IMAGE
     Route: 048
     Dates: start: 20050521

REACTIONS (3)
  - DRUG INEFFECTIVE [None]
  - MENORRHAGIA [None]
  - MIDDLE INSOMNIA [None]
